FAERS Safety Report 7599682-5 (Version None)
Quarter: 2011Q3

REPORT INFORMATION
  Report Type: 
  Country: None (occurrence: None)
  Receive Date: 20110711
  Receipt Date: 20110628
  Transmission Date: 20111222
  Serious: Yes (Hospitalization)
  Sender: FDA-Public Use
  Company Number: US-ELI_LILLY_AND_COMPANY-US201107000052

PATIENT
  Sex: Male

DRUGS (10)
  1. FLUOXETINE [Concomitant]
  2. TAMSULOSIN HCL [Concomitant]
  3. METOPROLOL TARTRATE [Concomitant]
  4. OMEPRAZOLE [Concomitant]
  5. HYDROCODONE BITARTRATE [Concomitant]
  6. HALOPERIDOL [Concomitant]
  7. GABAPENTIN [Concomitant]
  8. HYDROXYZINE [Concomitant]
  9. BENZTROPINE MESYLATE [Concomitant]
  10. ZYPREXA [Suspect]
     Indication: SCHIZOPHRENIA
     Dosage: 20 MG, QD
     Route: 065
     Dates: start: 19990101

REACTIONS (5)
  - POST PROCEDURAL HAEMORRHAGE [None]
  - BLOOD PRESSURE DECREASED [None]
  - HEART VALVE INCOMPETENCE [None]
  - POLYP [None]
  - PNEUMONIA [None]
